FAERS Safety Report 19465009 (Version 2)
Quarter: 2021Q2

REPORT INFORMATION
  Report Type: Report from Study
  Country: US (occurrence: US)
  Receive Date: 20210626
  Receipt Date: 20210626
  Transmission Date: 20210717
  Serious: No
  Sender: FDA-Public Use
  Company Number: NVSC2021US135999

PATIENT
  Sex: Female

DRUGS (1)
  1. COSENTYX [Suspect]
     Active Substance: SECUKINUMAB
     Indication: PSORIASIS
     Dosage: 300 MG/KG,EVERY 4 WEEKS
     Route: 058

REACTIONS (4)
  - Pain of skin [Unknown]
  - Fatigue [Unknown]
  - Stress [Unknown]
  - Skin plaque [Unknown]
